FAERS Safety Report 5173992-3 (Version None)
Quarter: 2006Q4

REPORT INFORMATION
  Report Type: 
  Country: None (occurrence: None)
  Receive Date: 20061214
  Receipt Date: 20061201
  Transmission Date: 20070319
  Serious: Yes (Death)
  Sender: FDA-Public Use
  Company Number: AR-MERCK-0612USA01114

PATIENT
  Age: 34 Year
  Sex: Male

DRUGS (3)
  1. STROMECTOL [Suspect]
     Indication: STRONGYLOIDIASIS
     Route: 048
  2. SULFAMETHOXAZOLE AND TRIMETHOPRIM [Concomitant]
     Indication: PNEUMOCYSTIS JIROVECI PNEUMONIA
     Route: 065
  3. PREDNISONE [Concomitant]
     Indication: PNEUMOCYSTIS JIROVECI PNEUMONIA
     Route: 065

REACTIONS (5)
  - DRUG INEFFECTIVE [None]
  - ILEUS [None]
  - MALABSORPTION [None]
  - MULTI-ORGAN FAILURE [None]
  - STRONGYLOIDIASIS [None]
